FAERS Safety Report 12799814 (Version 1)
Quarter: 2016Q3

REPORT INFORMATION
  Report Type: Report from Study
  Country: GR (occurrence: GR)
  Receive Date: 20160930
  Receipt Date: 20160930
  Transmission Date: 20161109
  Serious: Yes (Other)
  Sender: FDA-Public Use
  Company Number: GR-REGENERON PHARMACEUTICALS, INC.-2016-22140

PATIENT

DRUGS (1)
  1. EYLEA [Suspect]
     Active Substance: AFLIBERCEPT
     Indication: MACULAR DEGENERATION
     Dosage: UNK
     Route: 031
     Dates: start: 201608, end: 201608

REACTIONS (1)
  - Polyp [Not Recovered/Not Resolved]

NARRATIVE: CASE EVENT DATE: 201608
